FAERS Safety Report 16502109 (Version 1)
Quarter: 2019Q3

REPORT INFORMATION
  Report Type: Spontaneous
  Country: US (occurrence: US)
  Receive Date: 20190629
  Receipt Date: 20190629
  Transmission Date: 20191004
  Serious: Yes (Other)
  Sender: FDA-Public Use
  Company Number: None

PATIENT
  Age: 29 Year
  Weight: 54 kg

DRUGS (6)
  1. LEXAPRO [Suspect]
     Active Substance: ESCITALOPRAM OXALATE
     Indication: MAJOR DEPRESSION
     Dosage: ?          QUANTITY:30 TABLET(S);?
     Route: 048
     Dates: start: 20181201, end: 20190607
  2. SPIRONLACTONE [Concomitant]
  3. VITAMIN D [Concomitant]
     Active Substance: VITAMIN D NOS
  4. CYMBALTA [Concomitant]
     Active Substance: DULOXETINE HYDROCHLORIDE
  5. INVEGA SUSSTENNA [Concomitant]
  6. PROGESTERONE. [Concomitant]
     Active Substance: PROGESTERONE

REACTIONS (1)
  - Psychosexual disorder [None]

NARRATIVE: CASE EVENT DATE: 20190103
